FAERS Safety Report 9630263 (Version 1)
Quarter: 2013Q4

REPORT INFORMATION
  Report Type: Spontaneous
  Country: US (occurrence: US)
  Receive Date: 20131017
  Receipt Date: 20131017
  Transmission Date: 20140711
  Serious: Yes (Hospitalization)
  Sender: FDA-Public Use
  Company Number: US-PFIZER INC-2013297061

PATIENT
  Age: 85 Year
  Sex: Male

DRUGS (2)
  1. LYRICA [Suspect]
     Dosage: 75 MG IN THE MORNING, 100 MG IN THE AFTERNOON AND 75 MG AT DINNER
     Dates: start: 2013
  2. TRAMADOL [Concomitant]
     Dosage: UNK

REACTIONS (8)
  - Pain [Unknown]
  - Insomnia [Unknown]
  - Abdominal pain upper [Unknown]
  - Panic attack [Unknown]
  - Fatigue [Unknown]
  - Dizziness [Unknown]
  - Feeling abnormal [Unknown]
  - Sensory disturbance [Unknown]
